FAERS Safety Report 7397594-3 (Version None)
Quarter: 2011Q2

REPORT INFORMATION
  Report Type: 
  Country: None (occurrence: None)
  Receive Date: 20110406
  Receipt Date: 20110331
  Transmission Date: 20111010
  Serious: Yes (Death, Life-Threatening, Other)
  Sender: FDA-Public Use
  Company Number: JP-MERCK-1102USA00687

PATIENT
  Age: 58 Year
  Sex: Male
  Weight: 65 kg

DRUGS (11)
  1. MUCOSOLVAN [Concomitant]
     Route: 065
     Dates: start: 20060801, end: 20060826
  2. METHYLPREDNISOLONE SODIUM SUCCINATE [Concomitant]
     Route: 065
     Dates: start: 20040820, end: 20060829
  3. FLOMAX [Concomitant]
     Route: 065
     Dates: start: 20060815, end: 20060826
  4. ONEALFA [Concomitant]
     Route: 065
     Dates: start: 20040820, end: 20060829
  5. PREDONINE [Concomitant]
     Route: 065
     Dates: start: 20000107, end: 20070121
  6. TERNELIN [Concomitant]
     Route: 065
     Dates: start: 20040820, end: 20060829
  7. SM POWDER [Concomitant]
     Route: 065
     Dates: start: 20060808, end: 20060826
  8. PROGRAF [Suspect]
     Indication: MYASTHENIA GRAVIS
     Route: 048
     Dates: start: 20050115, end: 20060915
  9. ATARAX [Concomitant]
     Route: 065
     Dates: start: 20040820, end: 20060829
  10. PEPCID [Suspect]
     Route: 048
     Dates: start: 20040820, end: 20060829
  11. BAKTAR [Concomitant]
     Route: 065
     Dates: start: 20060806

REACTIONS (3)
  - SEPSIS [None]
  - STEVENS-JOHNSON SYNDROME [None]
  - PNEUMONIA STAPHYLOCOCCAL [None]
